FAERS Safety Report 6005352-7 (Version None)
Quarter: 2008Q4

REPORT INFORMATION
  Report Type: 
  Country: None (occurrence: None)
  Receive Date: 20081216
  Receipt Date: 20081201
  Transmission Date: 20090506
  Serious: Yes (Hospitalization)
  Sender: FDA-Public Use
  Company Number: FR-GENENTECH-273252

PATIENT
  Age: 76 Year
  Sex: Male

DRUGS (5)
  1. RITUXAN [Suspect]
     Indication: LYMPHOMA
     Dosage: 650 MG, UNK
     Route: 042
     Dates: start: 20080311
  2. RITUXAN [Suspect]
     Dosage: 860 MG, UNK
     Dates: start: 20081009
  3. CYCLOPHOSPHAMIDE [Concomitant]
     Indication: DRUG USE FOR UNKNOWN INDICATION
     Dosage: 1320 MG, UNK
     Dates: start: 20080311
  4. FLUDARABINE PHOSPHATE [Concomitant]
     Indication: DRUG USE FOR UNKNOWN INDICATION
     Dosage: 127.5 MG, UNK
     Dates: start: 20080311
  5. IBRITUMOMAB TIUXETAN [Concomitant]
     Indication: LYMPHOMA
     Dosage: 915 UNK, UNK
     Dates: start: 20081016

REACTIONS (1)
  - FEBRILE BONE MARROW APLASIA [None]
